FAERS Safety Report 21247965 (Version 2)
Quarter: 2022Q3

REPORT INFORMATION
  Report Type: Report from Study
  Country: US (occurrence: US)
  Receive Date: 20220824
  Receipt Date: 20220829
  Transmission Date: 20221026
  Serious: No
  Sender: FDA-Public Use
  Company Number: US-NOVARTISTESTPH-NVSC2022US186989

PATIENT
  Age: 75 Year
  Sex: Male

DRUGS (1)
  1. JADENU [Suspect]
     Active Substance: DEFERASIROX
     Indication: Product used for unknown indication
     Dosage: 1080 MG, QD
     Route: 048
     Dates: start: 20220725

REACTIONS (5)
  - Epistaxis [Unknown]
  - Sinusitis [Unknown]
  - Haemoptysis [Unknown]
  - Nasal congestion [Unknown]
  - Increased viscosity of upper respiratory secretion [Unknown]

NARRATIVE: CASE EVENT DATE: 20220814
